FAERS Safety Report 7882481-4 (Version None)
Quarter: 2011Q4

REPORT INFORMATION
  Report Type: 
  Country: None (occurrence: None)
  Receive Date: 20111101
  Receipt Date: 20110615
  Transmission Date: 20120403
  Serious: No
  Sender: FDA-Public Use
  Company Number: US-AMGEN-USASP2011030860

PATIENT
  Age: 54 Year
  Sex: Male

DRUGS (18)
  1. SINGULAIR [Concomitant]
     Dosage: 10 MG, UNK
  2. CALCIUM [Concomitant]
     Dosage: UNK
  3. CRESTOR [Concomitant]
     Dosage: 40 MG, UNK
  4. FISH OIL [Concomitant]
     Dosage: UNK
  5. METHOTREXATE [Concomitant]
     Dosage: 2.5 MG, UNK
  6. ALLEGRA [Concomitant]
     Dosage: 30 MG, UNK
  7. XYZAL [Concomitant]
     Dosage: 5 MG, UNK
  8. METFORMIN HCL [Concomitant]
     Dosage: 1000 MG, UNK
  9. FOLIC ACID [Concomitant]
     Dosage: 1 MG, UNK
  10. TOPROL-XL [Concomitant]
     Dosage: 50 MG, UNK
  11. NEXIUM [Concomitant]
     Dosage: 40 MG, UNK
  12. VITAMIN E [Concomitant]
     Dosage: 800 IU, UNK
  13. PREDNISONE [Concomitant]
     Dosage: 2.5 MG, UNK
  14. VITAMIN D [Concomitant]
     Dosage: 400 IU, UNK
  15. ENBREL [Suspect]
     Indication: PRODUCT USED FOR UNKNOWN INDICATION
     Dosage: 50 MG, QWK
     Route: 058
  16. TRAMADOL HCL [Concomitant]
     Dosage: 50 MG, UNK
  17. LISINOPRIL [Concomitant]
     Dosage: 5 MG, UNK
  18. IBUPROFEN [Concomitant]
     Dosage: 200 MG, UNK

REACTIONS (1)
  - DYSPEPSIA [None]
